FAERS Safety Report 6723572-0 (Version None)
Quarter: 2010Q2

REPORT INFORMATION
  Report Type: 
  Country: None (occurrence: None)
  Receive Date: 20100513
  Receipt Date: 20100503
  Transmission Date: 20101027
  Serious: Yes (Other)
  Sender: FDA-Public Use
  Company Number: DE-WYE-G06067910

PATIENT
  Sex: Female

DRUGS (1)
  1. TREVILOR RETARD [Suspect]
     Dosage: 75 MG, FREQUENCY UNKNOWN
     Route: 048

REACTIONS (2)
  - FRACTURE [None]
  - IMPAIRED HEALING [None]
